FAERS Safety Report 5092076-6 (Version None)
Quarter: 2006Q3

REPORT INFORMATION
  Report Type: 
  Country: None (occurrence: None)
  Receive Date: 20060825
  Receipt Date: 20060816
  Transmission Date: 20061208
  Serious: Yes (Disabling)
  Sender: FDA-Public Use
  Company Number: OSCN-NO-0608S-0228

PATIENT
  Age: 60 Year
  Sex: Female

DRUGS (1)
  1. OMNISCAN [Suspect]
     Dosage: SINGLE DOSE, I.V.
     Route: 042
     Dates: start: 20030610, end: 20030610

REACTIONS (2)
  - NEPHROGENIC FIBROSING DERMOPATHY [None]
  - NEURALGIA [None]
